FAERS Safety Report 16969540 (Version 1)
Quarter: 2019Q4

REPORT INFORMATION
  Report Type: Spontaneous
  Country: JP (occurrence: JP)
  Receive Date: 20191029
  Receipt Date: 20191029
  Transmission Date: 20200122
  Serious: Yes (Other)
  Sender: FDA-Public Use
  Company Number: JP-GLAXOSMITHKLINE-JP2019JPN192938

PATIENT
  Age: 84 Year
  Sex: Male

DRUGS (9)
  1. URIEF [Concomitant]
     Active Substance: SILODOSIN
     Dosage: UNK
     Route: 048
     Dates: start: 20190218
  2. FLIVAS OD [Concomitant]
     Active Substance: NAFTOPIDIL
     Dosage: UNK
     Route: 048
     Dates: start: 20130510, end: 20151116
  3. CERNILTON [Concomitant]
     Active Substance: HERBALS
     Dosage: UNK
     Route: 048
     Dates: start: 20111212, end: 20121019
  4. NAFTOPIDIL OD [Concomitant]
     Active Substance: NAFTOPIDIL
     Dosage: UNK
     Route: 048
     Dates: start: 20151116, end: 20190218
  5. TOVIAZ [Concomitant]
     Active Substance: FESOTERODINE FUMARATE
     Dosage: UNK
     Route: 048
     Dates: start: 20171002, end: 20181025
  6. MAGMITT TABLET [Concomitant]
     Dosage: UNK
     Route: 048
     Dates: start: 20180730
  7. TAMSULOSIN HYDROCHLORIDE OD [Concomitant]
     Active Substance: TAMSULOSIN HYDROCHLORIDE
     Dosage: UNK
     Route: 048
     Dates: start: 20111212, end: 20130510
  8. BONVIVA (IBANDRONATE SODIUM MONOHYDRATE) [Concomitant]
     Dosage: UNK
     Route: 048
     Dates: start: 20190527
  9. AVOLVE [Suspect]
     Active Substance: DUTASTERIDE
     Indication: BENIGN PROSTATIC HYPERPLASIA
     Dosage: 0.5 MG, QD
     Route: 048
     Dates: start: 20111212, end: 20190614

REACTIONS (3)
  - Urinary retention [Unknown]
  - Nipple pain [Recovered/Resolved]
  - Dysuria [Unknown]

NARRATIVE: CASE EVENT DATE: 20130510
